FAERS Safety Report 7532833-7 (Version None)
Quarter: 2011Q2

REPORT INFORMATION
  Report Type: 
  Country: None (occurrence: None)
  Receive Date: 20110608
  Receipt Date: 20110603
  Transmission Date: 20111010
  Serious: Yes (Hospitalization)
  Sender: FDA-Public Use
  Company Number: GB-ABBOTT-11P-167-0716616-00

PATIENT
  Sex: Female
  Weight: 63.4 kg

DRUGS (1)
  1. HUMIRA [Suspect]
     Indication: PSORIASIS
     Dates: start: 20100921, end: 20110301

REACTIONS (6)
  - DRY EYE [None]
  - GINGIVAL BLEEDING [None]
  - DRY MOUTH [None]
  - EAR DISORDER [None]
  - NAUSEA [None]
  - DIARRHOEA [None]
